FAERS Safety Report 10545364 (Version 2)
Quarter: 2014Q4

REPORT INFORMATION
  Report Type: Spontaneous
  Country: BR (occurrence: BR)
  Receive Date: 20141027
  Receipt Date: 20141027
  Transmission Date: 20150529
  Serious: Yes (Other)
  Sender: FDA-Public Use
  Company Number: BR-PFIZER INC-2014280343

PATIENT
  Age: 64 Year
  Sex: Female
  Weight: 95 kg

DRUGS (11)
  1. LIPITOR [Suspect]
     Active Substance: ATORVASTATIN CALCIUM
     Dosage: 20 MG, 2X/DAY (AT NIGHT)
     Route: 048
     Dates: start: 20141010
  2. LIPITOR [Suspect]
     Active Substance: ATORVASTATIN CALCIUM
     Indication: BLOOD CHOLESTEROL INCREASED
     Dosage: 20 MG, 1X/DAY (AT NIGHT)
     Route: 048
     Dates: start: 201407, end: 20141009
  3. LIPLESS [Concomitant]
     Active Substance: CIPROFIBRATE
     Indication: BLOOD TRIGLYCERIDES
     Dosage: 100 MG, ALTERNATE DAY
     Dates: start: 201407
  4. ATENSINA [Concomitant]
     Active Substance: CLONIDINE
     Indication: BLOOD PRESSURE ABNORMAL
     Dosage: 0.2 MG, DAILY
     Dates: start: 201409
  5. DIOVAN TRIPLE [Concomitant]
     Active Substance: AMLODIPINE BESYLATE\HYDROCHLOROTHIAZIDE\VALSARTAN
     Indication: BLOOD PRESSURE ABNORMAL
     Dosage: 1 DF, DAILY (IN THE MORNING)
     Dates: start: 2011
  6. VITAMIN D [Concomitant]
     Active Substance: CHOLECALCIFEROL
     Dosage: UNK
  7. DIOVAN AMLO FIX [Concomitant]
     Active Substance: AMLODIPINE\VALSARTAN
     Indication: BLOOD PRESSURE ABNORMAL
     Dosage: UNK, AT NIGHT
  8. GALVUS MET [Concomitant]
     Active Substance: METFORMIN HYDROCHLORIDE\VILDAGLIPTIN
     Indication: BLOOD GLUCOSE ABNORMAL
  9. OMEPRAZOLE. [Concomitant]
     Active Substance: OMEPRAZOLE
     Indication: GASTRIC DISORDER
     Dosage: 1 DF, DAILY (FASTING)
     Dates: start: 201409
  10. LOPRESSOR [Concomitant]
     Active Substance: METOPROLOL TARTRATE
     Indication: BLOOD PRESSURE
     Dosage: 100 MG, AT NIGHT
  11. GALVUS MET [Concomitant]
     Active Substance: METFORMIN HYDROCHLORIDE\VILDAGLIPTIN
     Indication: DIABETES MELLITUS
     Dosage: 1 DF, 2X/DAY (MORNING + NIGHT)
     Dates: start: 20140715

REACTIONS (6)
  - Scoliosis [Unknown]
  - Back pain [Unknown]
  - Drug ineffective [Recovering/Resolving]
  - Feeling hot [Unknown]
  - Arthralgia [Recovering/Resolving]
  - Pain in extremity [Unknown]

NARRATIVE: CASE EVENT DATE: 2014
